FAERS Safety Report 6345243-5 (Version None)
Quarter: 2009Q3

REPORT INFORMATION
  Report Type: 
  Country: None (occurrence: None)
  Receive Date: 20090909
  Receipt Date: 20090831
  Transmission Date: 20100115
  Serious: Yes (Other)
  Sender: FDA-Public Use
  Company Number: PHHY2009MX37305

PATIENT
  Sex: Female

DRUGS (1)
  1. EXFORGE [Suspect]
     Indication: HYPERTENSION
     Dosage: 1 TABLET (160/5 MG)
     Dates: start: 20080401, end: 20090801

REACTIONS (5)
  - CATARACT OPERATION [None]
  - CEREBRAL INFARCTION [None]
  - FALL [None]
  - TRAUMATIC BRAIN INJURY [None]
  - VISUAL ACUITY REDUCED [None]
